FAERS Safety Report 18319599 (Version 1)
Quarter: 2020Q3

REPORT INFORMATION
  Report Type: Spontaneous
  Country: US (occurrence: US)
  Receive Date: 20200928
  Receipt Date: 20200928
  Transmission Date: 20201103
  Serious: Yes (Other)
  Sender: FDA-Public Use
  Company Number: US-FRESENIUS KABI-FK202009888

PATIENT

DRUGS (8)
  1. OXALIPLATIN. [Suspect]
     Active Substance: OXALIPLATIN
     Indication: COLORECTAL CANCER
     Dosage: FOLFIRINOX DRUG
     Route: 065
     Dates: start: 20200915
  2. PALONOSETRON. [Concomitant]
     Active Substance: PALONOSETRON HYDROCHLORIDE
     Indication: ANTIEMETIC SUPPORTIVE CARE
     Dosage: 0.25 MG IV PUSH EVERY TWO WEEKS.?ANTIEMETIC
     Route: 042
     Dates: start: 20200915
  3. FLUOROURACIL (MANUFACTURER UNKNOWN) [Suspect]
     Active Substance: FLUOROURACIL
     Indication: COLORECTAL CANCER
     Dosage: INFUSED OVER 46 HOURS EVERY 2 WEEKS
     Route: 065
     Dates: start: 20200915
  4. DEXAMETHASONE. [Concomitant]
     Active Substance: DEXAMETHASONE
     Indication: ANTIEMETIC SUPPORTIVE CARE
     Dosage: 10 MG INFUSED EVERY TWO WEEKS?ANTIEMETIC
     Route: 065
     Dates: start: 20200915
  5. ATROPINE. [Concomitant]
     Active Substance: ATROPINE
     Indication: PRODUCT USED FOR UNKNOWN INDICATION
     Dosage: 0.4 MG SUBCUTANEOUS ONCE EVERY 2 WEEKS/?ANTICHOLINERGIC
     Route: 058
     Dates: start: 20200915
  6. CALCIUM FOLINATE [Suspect]
     Active Substance: LEUCOVORIN CALCIUM
     Indication: COLORECTAL CANCER
     Dosage: OVER 90 MINUTES EVERY 2 WEEKS
     Route: 042
     Dates: start: 20200915
  7. IRINOTECAN HYDROCHLORIDE. [Suspect]
     Active Substance: IRINOTECAN HYDROCHLORIDE
     Indication: COLORECTAL CANCER
     Dosage: 180 MG/MM2 VIA INFUSION EVERY 2 WEEKS
     Route: 065
     Dates: start: 20200706
  8. APREPITANT. [Concomitant]
     Active Substance: APREPITANT
     Indication: ANTIEMETIC SUPPORTIVE CARE
     Dosage: 130 MG. INFUSED EVERY 2 WEEKS?ANTIEMETIC
     Route: 065
     Dates: start: 20200915

REACTIONS (4)
  - Asthenia [Recovering/Resolving]
  - Dysphagia [Recovered/Resolved]
  - Muscular weakness [Recovering/Resolving]
  - Muscle twitching [Recovering/Resolving]

NARRATIVE: CASE EVENT DATE: 20200915
